FAERS Safety Report 23757335 (Version 1)
Quarter: 2024Q2

REPORT INFORMATION
  Report Type: Report from Study
  Country: US (occurrence: US)
  Receive Date: 20240418
  Receipt Date: 20240418
  Transmission Date: 20240716
  Serious: Yes (Hospitalization, Other)
  Sender: FDA-Public Use
  Company Number: US-UCBSA-2021041039

PATIENT
  Age: 30 Year
  Sex: Female

DRUGS (1)
  1. CERTOLIZUMAB PEGOL [Suspect]
     Active Substance: CERTOLIZUMAB PEGOL
     Indication: Psoriasis
     Dosage: 400 MILLIGRAM, EV 2 WEEKS(QOW)
     Dates: start: 20201001, end: 202106

REACTIONS (10)
  - Eclampsia [Unknown]
  - Gestational hypertension [Unknown]
  - Hidradenitis [Unknown]
  - Psoriasis [Recovered/Resolved]
  - Breech presentation [Unknown]
  - Caesarean section [Unknown]
  - Maternal exposure during pregnancy [Unknown]
  - Maternal exposure during breast feeding [Unknown]
  - Intentional dose omission [Unknown]
  - Product use issue [Unknown]

NARRATIVE: CASE EVENT DATE: 20201001
